FAERS Safety Report 26044917 (Version 1)
Quarter: 2025Q4

REPORT INFORMATION
  Report Type: Spontaneous
  Country: CN (occurrence: CN)
  Receive Date: 20251114
  Receipt Date: 20251114
  Transmission Date: 20260118
  Serious: Yes (Death, Life-Threatening, Hospitalization)
  Sender: DR REDDYS
  Company Number: None

PATIENT
  Age: 59 Year
  Sex: Female

DRUGS (4)
  1. QUETIAPINE [Suspect]
     Active Substance: QUETIAPINE
     Indication: Mood swings
     Dosage: 12.5 MG QN (EVERY NIGHT)
  2. MEMANTINE [Suspect]
     Active Substance: MEMANTINE
     Indication: Parkinson^s disease
     Dosage: A LONG TIME
  3. OLANZAPINE [Suspect]
     Active Substance: OLANZAPINE
     Indication: Mood swings
     Dosage: 1.25 MG QN (EVERY NIGHT)
  4. AMANTADINE [Suspect]
     Active Substance: AMANTADINE
     Indication: Parkinson^s disease
     Dosage: A LONG TIME

REACTIONS (2)
  - Neuroleptic malignant syndrome [Fatal]
  - Disseminated intravascular coagulation [Fatal]
